FAERS Safety Report 7674089-0 (Version None)
Quarter: 2011Q3

REPORT INFORMATION
  Report Type: 
  Country: None (occurrence: None)
  Receive Date: 20110810
  Receipt Date: 20110804
  Transmission Date: 20111222
  Serious: Yes (Other)
  Sender: FDA-Public Use
  Company Number: US-TEVA-294965USA

PATIENT
  Sex: Female

DRUGS (1)
  1. NASAREL [Suspect]
     Indication: NASAL POLYPS

REACTIONS (2)
  - NEOPLASM MALIGNANT [None]
  - DRUG INEFFECTIVE [None]
